FAERS Safety Report 5218504-0 (Version None)
Quarter: 2006Q4

REPORT INFORMATION
  Report Type: 
  Country: None (occurrence: None)
  Receive Date: 20061121
  Receipt Date: 20060927
  Transmission Date: 20070319
  Serious: No
  Sender: FDA-Public Use
  Company Number: TPA2006A01717

PATIENT
  Sex: 0

DRUGS (1)
  1. ROZEREM [Suspect]
     Dosage: 8 MG, UNKNOWN, PER ORAL
     Route: 048

REACTIONS (2)
  - FATIGUE [None]
  - HANGOVER [None]
